FAERS Safety Report 15194430 (Version 1)
Quarter: 2018Q3

REPORT INFORMATION
  Report Type: Spontaneous
  Country: ES (occurrence: ES)
  Receive Date: 20180725
  Receipt Date: 20180725
  Transmission Date: 20181010
  Serious: Yes (Other)
  Sender: FDA-Public Use
  Company Number: ES-LUPIN PHARMACEUTICALS INC.-2018-05163

PATIENT
  Age: 58 Year
  Sex: Female

DRUGS (4)
  1. ZONISAMIDE. [Concomitant]
     Active Substance: ZONISAMIDE
     Indication: HISTRIONIC PERSONALITY DISORDER
     Dosage: 100 MG, QD
     Route: 065
  2. QUETIAPINE. [Suspect]
     Active Substance: QUETIAPINE
     Indication: DEPRESSION
     Dosage: GRADUAL DECREASE IN DOSE
     Route: 065
  3. QUETIAPINE. [Suspect]
     Active Substance: QUETIAPINE
     Indication: HISTRIONIC PERSONALITY DISORDER
     Dosage: 600 MG, QD
     Route: 065
  4. ZONISAMIDE. [Concomitant]
     Active Substance: ZONISAMIDE
     Indication: DEPRESSION

REACTIONS (1)
  - Hemiplegia [Recovered/Resolved]
